FAERS Safety Report 14662832 (Version 1)
Quarter: 2018Q1

REPORT INFORMATION
  Report Type: Spontaneous
  Country: IN (occurrence: IN)
  Receive Date: 20180321
  Receipt Date: 20180321
  Transmission Date: 20180509
  Serious: No
  Sender: FDA-Public Use
  Company Number: IN-LUPIN PHARMACEUTICALS INC.-2017-02034

PATIENT
  Age: 28 Year
  Sex: Male

DRUGS (2)
  1. LIVNZYME [Concomitant]
     Indication: DYSPEPSIA
     Dosage: 2 DF (TEASPOONS), BID
     Route: 048
     Dates: start: 20170412
  2. XIMECEFF TABLET [Suspect]
     Active Substance: CEFIXIME
     Indication: DYSPEPSIA
     Dosage: 1 DF, BID
     Route: 048
     Dates: start: 20170412

REACTIONS (2)
  - Off label use [Unknown]
  - Chromaturia [Not Recovered/Not Resolved]

NARRATIVE: CASE EVENT DATE: 20170412
